FAERS Safety Report 7788733-0 (Version None)
Quarter: 2011Q3

REPORT INFORMATION
  Report Type: 
  Country: None (occurrence: None)
  Receive Date: 20110928
  Receipt Date: 20110914
  Transmission Date: 20111222
  Serious: Yes (Disabling)
  Sender: FDA-Public Use
  Company Number: 1000024134

PATIENT
  Age: 62 Year
  Sex: Female
  Weight: 79.38 kg

DRUGS (4)
  1. VENTOLIN [Concomitant]
  2. ROFLUMILAST (ROFLUMILAST) (TABLETS) [Suspect]
     Dosage: 500 MCG, ORAL
     Route: 048
  3. ADVAIR DISKUS (FLUTICASONE, SALMETEROL) [Concomitant]
  4. SPIRIVA [Concomitant]

REACTIONS (4)
  - OEDEMA PERIPHERAL [None]
  - PARAESTHESIA [None]
  - GAIT DISTURBANCE [None]
  - BACK PAIN [None]
